FAERS Safety Report 16828360 (Version 1)
Quarter: 2019Q3

REPORT INFORMATION
  Report Type: Spontaneous
  Country: CN (occurrence: CN)
  Receive Date: 20190919
  Receipt Date: 20190919
  Transmission Date: 20191005
  Serious: Yes (Other)
  Sender: FDA-Public Use
  Company Number: CN-BAXTER-2019BAX018166

PATIENT
  Age: 57 Year
  Sex: Female
  Weight: 60 kg

DRUGS (6)
  1. ENDOXAN [Suspect]
     Active Substance: CYCLOPHOSPHAMIDE
     Indication: BREAST CANCER FEMALE
     Dosage: CYCLOPHOSPHAMIDE 800 MG DILUTED WITH 40 ML NS, FOR FIRST CHEMOTHERAPY
     Route: 042
     Dates: start: 20190701, end: 20190701
  2. 0.9% SODIUM CHLORIDE INJECTION [Suspect]
     Active Substance: SODIUM CHLORIDE
     Dosage: EPIRUBICIN HYDROCHLORIDE 160 MG DILUTED WITH NS 100 ML, FOR FIRST CHEMOTHERAPY
     Route: 041
     Dates: start: 20190701, end: 20190701
  3. 0.9% SODIUM CHLORIDE INJECTION [Suspect]
     Active Substance: SODIUM CHLORIDE
     Dosage: FLUOROURACIL 800 MG DILUTED WITH NS 500 ML, FOR FIRST CHEMOTHERAPY
     Route: 041
     Dates: start: 20190701, end: 20190701
  4. FLUOROURACIL. [Suspect]
     Active Substance: FLUOROURACIL
     Indication: BREAST CANCER FEMALE
     Dosage: FLUOROURACIL 800 MG DILUTED WITH NS 500 ML, FOR FIRST CHEMOTHERAPY
     Route: 041
     Dates: start: 20190701, end: 20190701
  5. PHARMORUBICIN RD [Suspect]
     Active Substance: EPIRUBICIN
     Indication: BREAST CANCER FEMALE
     Dosage: EPIRUBICIN HYDROCHLORIDE 160 MG DILUTED WITH NS 100 ML, FOR FIRST CHEMOTHERAPY
     Route: 041
     Dates: start: 20190701, end: 20190701
  6. 0.9% SODIUM CHLORIDE INJECTION [Suspect]
     Active Substance: SODIUM CHLORIDE
     Indication: MEDICATION DILUTION
     Dosage: CYCLOPHOSPHAMIDE 800 MG DILUTED WITH 40 ML NS, FOR FIRST CHEMOTHERAPY
     Route: 042
     Dates: start: 20190701, end: 20190701

REACTIONS (2)
  - Leukopenia [Recovered/Resolved]
  - Agranulocytosis [Recovered/Resolved]

NARRATIVE: CASE EVENT DATE: 20190708
